FAERS Safety Report 6064607-0 (Version None)
Quarter: 2009Q1

REPORT INFORMATION
  Report Type: 
  Country: None (occurrence: None)
  Receive Date: 20090204
  Receipt Date: 20090128
  Transmission Date: 20090719
  Serious: Yes (Disabling)
  Sender: FDA-Public Use
  Company Number: B0557262A

PATIENT
  Age: 46 Year
  Sex: Female

DRUGS (3)
  1. LAMICTAL [Suspect]
     Indication: BIPOLAR DISORDER
     Dosage: 200MG PER DAY
     Route: 048
     Dates: start: 20010901
  2. VALPROIC ACID [Concomitant]
     Dosage: 1000MG PER DAY
     Route: 048
  3. OLANZAPINE [Concomitant]
     Route: 048

REACTIONS (1)
  - PSORIASIS [None]
